FAERS Safety Report 7515317-1 (Version None)
Quarter: 2011Q2

REPORT INFORMATION
  Report Type: 
  Country: None (occurrence: None)
  Receive Date: 20110601
  Receipt Date: 20110517
  Transmission Date: 20111010
  Serious: Yes (Other)
  Sender: FDA-Public Use
  Company Number: US-JNJFOC-20110507826

PATIENT
  Age: 52 Year
  Sex: Female

DRUGS (2)
  1. MESALAMINE [Concomitant]
  2. INFLIXIMAB, RECOMBINANT [Suspect]
     Indication: COLITIS ULCERATIVE
     Route: 042

REACTIONS (4)
  - ARTHRALGIA [None]
  - RECTAL NEOPLASM [None]
  - ANORECTAL SQUAMOUS CELL METAPLASIA [None]
  - PARAESTHESIA [None]
